FAERS Safety Report 8519753-6 (Version None)
Quarter: 2012Q3

REPORT INFORMATION
  Report Type: 
  Country: None (occurrence: None)
  Receive Date: 20120719
  Receipt Date: 20120711
  Transmission Date: 20120928
  Serious: No
  Sender: FDA-Public Use
  Company Number: US-BIOGENIDEC-2011BI045558

PATIENT
  Sex: Male

DRUGS (1)
  1. TYSABRI [Suspect]
     Indication: MULTIPLE SCLEROSIS
     Route: 042
     Dates: start: 20100212, end: 20120509

REACTIONS (6)
  - CHILLS [None]
  - TACHYCARDIA [None]
  - HYPERTENSION [None]
  - HYPERHIDROSIS [None]
  - DRUG INTOLERANCE [None]
  - HYPERSENSITIVITY [None]
